FAERS Safety Report 11414544 (Version 1)
Quarter: 2015Q3

REPORT INFORMATION
  Report Type: Report from Study
  Country: US (occurrence: None)
  Receive Date: 20150821
  Receipt Date: 20150821
  Transmission Date: 20151125
  Serious: Yes (Other)
  Sender: FDA-Public Use
  Company Number: 15US003538

PATIENT
  Age: 80 Year
  Sex: Female
  Weight: 79.8 kg

DRUGS (16)
  1. INGENOL MEBUTATE [Suspect]
     Active Substance: INGENOL MEBUTATE
     Indication: ACTINIC KERATOSIS
     Dosage: ONE APPLICATION
     Route: 061
     Dates: start: 20150223, end: 20150225
  2. ASPIRIN (ACETYLSALICYLIC ACID) [Concomitant]
     Active Substance: ASPIRIN
  3. BENAZEPRIL [Concomitant]
     Active Substance: BENAZEPRIL HYDROCHLORIDE
  4. BILBERRY (VACCINIUM MYRTILLUS) [Concomitant]
  5. VITAMIN B12 [Concomitant]
     Active Substance: CYANOCOBALAMIN
  6. VITAMIN D (ERGOCALCIFEROL) [Concomitant]
     Active Substance: ERGOCALCIFEROL
  7. TURMERIC (CURCUMA LONGA) [Concomitant]
  8. CO Q10 (UBIDECARENONE) [Concomitant]
  9. TRIAMTEREEN/HYDROCHLOORTHIAZIDE (HYDROCHLOROTHIAZIDE, TRIAMTERENE) [Concomitant]
  10. OMEPRAZOLE. [Concomitant]
     Active Substance: OMEPRAZOLE
  11. SELENIUM [Concomitant]
     Active Substance: SELENIUM
  12. MELATONIN [Concomitant]
     Active Substance: MELATONIN
  13. MULTIVITAMIN (VITAMINS NOS) [Concomitant]
     Active Substance: VITAMINS
  14. LEVOTHRYOXINE [Concomitant]
     Active Substance: LEVOTHYROXINE
  15. OXYBUTYN (OXYBUTYNIN HYDROCHLORIDE) [Concomitant]
  16. POTASSIUM [Concomitant]
     Active Substance: POTASSIUM

REACTIONS (15)
  - Cough [None]
  - Nausea [None]
  - Chills [None]
  - Hyperhidrosis [None]
  - Vomiting [None]
  - Pyrexia [None]
  - Dry mouth [None]
  - Erythema [None]
  - Chest pain [None]
  - Concomitant disease progression [None]
  - Joint range of motion decreased [None]
  - Nipple pain [None]
  - Breast cancer [None]
  - Oedema peripheral [None]
  - Dyspnoea [None]

NARRATIVE: CASE EVENT DATE: 20150320
